FAERS Safety Report 5713895-6 (Version None)
Quarter: 2008Q2

REPORT INFORMATION
  Report Type: 
  Country: None (occurrence: None)
  Receive Date: 20080407
  Receipt Date: 20080407
  Transmission Date: 20081010
  Serious: Yes (Hospitalization)
  Sender: FDA-Public Use
  Company Number: None

PATIENT
  Sex: Male
  Weight: 88.2 kg

DRUGS (2)
  1. ENBREL [Suspect]
  2. PLACEBO/ETANERCEPT [Concomitant]

REACTIONS (2)
  - CERVICAL SPINAL STENOSIS [None]
  - RADICULITIS [None]
